FAERS Safety Report 5513668-3 (Version None)
Quarter: 2007Q4

REPORT INFORMATION
  Report Type: 
  Country: None (occurrence: None)
  Receive Date: 20071108
  Receipt Date: 20071023
  Transmission Date: 20080405
  Serious: Yes (Other)
  Sender: FDA-Public Use
  Company Number: 2007US002582

PATIENT
  Age: 36 Year
  Sex: Male

DRUGS (5)
  1. AMBISOME [Suspect]
     Indication: MENINGITIS CRYPTOCOCCAL
     Dosage: 1 MG/KG, UID/QD, IV DRIP, 5 MG/KG, UID/QD, IV DRIP
     Route: 041
     Dates: start: 20070703, end: 20070704
  2. AMBISOME [Suspect]
     Indication: MENINGITIS CRYPTOCOCCAL
     Dosage: 1 MG/KG, UID/QD, IV DRIP, 5 MG/KG, UID/QD, IV DRIP
     Route: 041
     Dates: start: 20070704
  3. FLUOROCYTOSINE (FLUCYTOSINE) [Concomitant]
  4. FLUCONAZOLE [Concomitant]
  5. KEPPRA [Concomitant]

REACTIONS (3)
  - CONVULSION [None]
  - ENCEPHALITIS [None]
  - PARTIAL SEIZURES [None]
